FAERS Safety Report 15948072 (Version 1)
Quarter: 2019Q1

REPORT INFORMATION
  Report Type: Spontaneous
  Country: CA (occurrence: US)
  Receive Date: 20190211
  Receipt Date: 20190211
  Transmission Date: 20190417
  Serious: Yes (Hospitalization)
  Sender: FDA-Public Use
  Company Number: US-XTTRIUM LABORATORIES, INC-2062491

PATIENT
  Sex: Female

DRUGS (1)
  1. SCRUB CARE EXIDINE -4 CHG [Suspect]
     Active Substance: CHLORHEXIDINE GLUCONATE
     Indication: PREOPERATIVE CARE
     Route: 061

REACTIONS (4)
  - Spinal column injury [Unknown]
  - Clavicle fracture [Unknown]
  - Balance disorder [None]
  - Musculoskeletal disorder [None]
